FAERS Safety Report 9189638 (Version 1)
Quarter: 2013Q1

REPORT INFORMATION
  Report Type: Spontaneous
  Country: JP (occurrence: JP)
  Receive Date: 20130326
  Receipt Date: 20130326
  Transmission Date: 20140127
  Serious: Yes (Hospitalization)
  Sender: FDA-Public Use
  Company Number: JP-JNJFOC-20130315000

PATIENT
  Age: 54 Year
  Sex: Female
  Weight: 36 kg

DRUGS (1)
  1. FINIBAX [Suspect]
     Indication: PNEUMONIA
     Route: 041
     Dates: start: 20130227

REACTIONS (3)
  - Convulsion [Recovered/Resolved]
  - Small intestinal haemorrhage [Recovered/Resolved]
  - Large intestine perforation [Recovered/Resolved]
